FAERS Safety Report 16950225 (Version 1)
Quarter: 2019Q4

REPORT INFORMATION
  Report Type: Spontaneous
  Country: US (occurrence: US)
  Receive Date: 20191023
  Receipt Date: 20191023
  Transmission Date: 20200122
  Serious: No
  Sender: FDA-Public Use
  Company Number: US-PFIZER INC-2019454857

PATIENT
  Age: 50 Year

DRUGS (1)
  1. CELEBREX [Suspect]
     Active Substance: CELECOXIB
     Dosage: 100 MG, UNK(QUANTITY FOR 90 DAYS: 90)

REACTIONS (2)
  - Product use issue [Unknown]
  - Off label use [Unknown]
